FAERS Safety Report 7135635-9 (Version None)
Quarter: 2010Q4

REPORT INFORMATION
  Report Type: 
  Country: None (occurrence: None)
  Receive Date: 20101203
  Receipt Date: 20101123
  Transmission Date: 20110411
  Serious: Yes (Other)
  Sender: FDA-Public Use
  Company Number: CH-AMGEN-CHESP2010005791

PATIENT

DRUGS (12)
  1. NEUPOGEN [Suspect]
     Indication: PROPHYLAXIS
     Dosage: 30 MILLION IU, PER CHEMO REGIM
  2. BLEOMYCIN SULFATE [Concomitant]
     Indication: LYMPHOMA
     Dosage: 19000 IU, UNK
     Dates: start: 20100803
  3. VELBE [Suspect]
     Indication: LYMPHOMA
     Dosage: 6 MG, UNK
     Dates: start: 20100803
  4. NORVIR [Concomitant]
     Indication: HIV INFECTION
     Dosage: 100 MG, UNK
     Dates: start: 20100615
  5. REYATAZ [Concomitant]
     Indication: HIV INFECTION
     Dosage: 300 MG, UNK
     Dates: start: 20100615
  6. VIREAD                             /01490001/ [Concomitant]
     Indication: HIV INFECTION
     Dosage: 245 MG, UNK
     Dates: start: 20100615
  7. ISENTRESS [Concomitant]
     Indication: HIV INFECTION
     Dosage: 400 MG, UNK
     Dates: start: 20100615
  8. DOXORUBICIN HCL [Concomitant]
     Indication: HODGKIN'S DISEASE
     Dosage: 50 MG, UNK
     Dates: start: 20100803
  9. DACARBAZINE [Concomitant]
     Indication: HODGKIN'S DISEASE
     Dosage: 735 MG, UNK
     Dates: start: 20100803
  10. HALDOL [Concomitant]
     Indication: PRODUCT USED FOR UNKNOWN INDICATION
     Dosage: 1 MG, UNK
     Dates: start: 20101010
  11. ZOLPIDEM [Concomitant]
     Indication: PRODUCT USED FOR UNKNOWN INDICATION
     Dosage: 10 MG, UNK
     Dates: start: 20101003
  12. ZOFRAN [Concomitant]
     Indication: PRODUCT USED FOR UNKNOWN INDICATION
     Dosage: UNK
     Dates: start: 20100803

REACTIONS (2)
  - CHEST PAIN [None]
  - RAYNAUD'S PHENOMENON [None]
